FAERS Safety Report 20867032 (Version 2)
Quarter: 2022Q2

REPORT INFORMATION
  Report Type: Spontaneous
  Country: FR (occurrence: FR)
  Receive Date: 20220524
  Receipt Date: 20220607
  Transmission Date: 20220720
  Serious: Yes (Hospitalization)
  Sender: FDA-Public Use
  Company Number: None

PATIENT
  Age: 60 Year
  Sex: Male
  Weight: 99 kg

DRUGS (13)
  1. PAROXETINE [Suspect]
     Active Substance: PAROXETINE
     Indication: Product used for unknown indication
     Dosage: UNK, NP 20 MG
     Route: 048
     Dates: start: 20220321, end: 20220321
  2. PAROXETINE [Suspect]
     Active Substance: PAROXETINE
     Dosage: 20 MG (3-0-00)
     Route: 048
     Dates: start: 20220321, end: 20220321
  3. BROMAZEPAM [Suspect]
     Active Substance: BROMAZEPAM
     Indication: Product used for unknown indication
     Dosage: UNK, NP 6 MG
     Route: 048
     Dates: start: 20220321, end: 20220321
  4. BROMAZEPAM [Suspect]
     Active Substance: BROMAZEPAM
     Dosage: 6 MILLIGRAM (6 MG (NP) (1/2-1/2-1/2) )
  5. BROMAZEPAM [Suspect]
     Active Substance: BROMAZEPAM
     Dosage: 6 MILLIGRAM (6 MG (NP) (1/2-1/2-1/2) )
     Route: 048
     Dates: start: 20220321, end: 20220321
  6. CYAMEMAZINE [Suspect]
     Active Substance: CYAMEMAZINE
     Indication: Insomnia
     Dosage: 25 MILLIGRAM (25 MG (NP) (0-0-3 AND 1 MORE CP IF INSOMNIA)  )
     Dates: start: 20220321, end: 20220321
  7. CYAMEMAZINE [Suspect]
     Active Substance: CYAMEMAZINE
     Dosage: UNK
     Dates: start: 20220321, end: 20220321
  8. CYAMEMAZINE [Suspect]
     Active Substance: CYAMEMAZINE
     Dosage: 25 MILLIGRAM, QD (25 MG (NP) (0-0-3 AND 1 MORE CP IF INSOMNIA))
     Route: 048
     Dates: start: 20220321, end: 20220321
  9. VENTOLIN [Concomitant]
     Active Substance: ALBUTEROL SULFATE
     Indication: Product used for unknown indication
     Dosage: UNK, UNK, QD (BID 1-0-1)
  10. PULMICORT TURBUHALER [Concomitant]
     Active Substance: BUDESONIDE
     Indication: Product used for unknown indication
     Dosage: UNK, QD (BID1-0-1)
  11. MORPHINE SULFATE [Concomitant]
     Active Substance: MORPHINE SULFATE
     Indication: Pain
     Dosage: UNK
  12. Neovis [Concomitant]
     Indication: Product used for unknown indication
     Dosage: 8 DROP, QD, (8 DRP, QD (2 GTT, QID EYES))
  13. LORMETAZEPAM [Concomitant]
     Active Substance: LORMETAZEPAM
     Indication: Product used for unknown indication
     Dosage: 2 MILLIGRAM, QD

REACTIONS (4)
  - Poisoning deliberate [Recovered/Resolved]
  - Coma [Recovered/Resolved]
  - Toxicity to various agents [Recovered/Resolved]
  - Intentional overdose [Unknown]

NARRATIVE: CASE EVENT DATE: 20220321
